FAERS Safety Report 6014938-5 (Version None)
Quarter: 2008Q4

REPORT INFORMATION
  Report Type: 
  Country: None (occurrence: None)
  Receive Date: 20081219
  Receipt Date: 20081210
  Transmission Date: 20090506
  Serious: Yes (Other)
  Sender: FDA-Public Use
  Company Number: AT-GENENTECH-273960

PATIENT

DRUGS (1)
  1. BEVACIZUMAB [Suspect]
     Indication: BRAIN NEOPLASM
     Route: 042

REACTIONS (1)
  - PROTEINURIA [None]
